FAERS Safety Report 11190240 (Version 1)
Quarter: 2015Q2

REPORT INFORMATION
  Report Type: Spontaneous
  Country: FR (occurrence: FR)
  Receive Date: 20150615
  Receipt Date: 20150615
  Transmission Date: 20150821
  Serious: Yes (Hospitalization, Other)
  Sender: FDA-Public Use
  Company Number: FR-ELI_LILLY_AND_COMPANY-FR201506001084

PATIENT
  Age: 61 Year
  Sex: Male

DRUGS (5)
  1. ALIMTA [Suspect]
     Active Substance: PEMETREXED DISODIUM
     Dosage: 750 MG/M2, CYCLICAL
     Route: 042
     Dates: start: 20140819, end: 20141209
  2. AVASTIN [Suspect]
     Active Substance: BEVACIZUMAB
     Dosage: 7.5 MG/KG, CYCLICAL
     Route: 042
     Dates: start: 20140819, end: 20141209
  3. GRANOCYTE [Suspect]
     Active Substance: LENOGRASTIM
     Indication: PRODUCT USED FOR UNKNOWN INDICATION
     Dosage: UNK, UNKNOWN (34 MU/ML)
     Route: 042
     Dates: start: 20141209, end: 20141209
  4. AVASTIN [Suspect]
     Active Substance: BEVACIZUMAB
     Indication: LUNG ADENOCARCINOMA STAGE IV
     Dosage: 7.5 MG/KG, CYCLICAL
     Route: 042
     Dates: start: 20140528, end: 20140729
  5. ALIMTA [Suspect]
     Active Substance: PEMETREXED DISODIUM
     Indication: LUNG ADENOCARCINOMA STAGE IV
     Dosage: 750 MG/M2, CYCLICAL
     Route: 042
     Dates: start: 20140528, end: 20140729

REACTIONS (6)
  - Nervous system disorder [Not Recovered/Not Resolved]
  - Off label use [Unknown]
  - Posterior reversible encephalopathy syndrome [Not Recovered/Not Resolved]
  - Lumbar puncture abnormal [Unknown]
  - Non-cardiac chest pain [Not Recovered/Not Resolved]
  - Tremor [Not Recovered/Not Resolved]

NARRATIVE: CASE EVENT DATE: 20140528
